FAERS Safety Report 8120096-3 (Version None)
Quarter: 2012Q1

REPORT INFORMATION
  Report Type: 
  Country: None (occurrence: None)
  Receive Date: 20120207
  Receipt Date: 20120202
  Transmission Date: 20120608
  Serious: Yes (Death)
  Sender: FDA-Public Use
  Company Number: MX-ACTELION-A-CH2012-60696

PATIENT
  Sex: Female
  Weight: 10.5 kg

DRUGS (2)
  1. TRACLEER [Suspect]
     Indication: PULMONARY ARTERIAL HYPERTENSION
     Dosage: 16 MG, BID
     Route: 048
     Dates: start: 20111023, end: 20120109
  2. SILDENAFIL [Concomitant]
     Dosage: 15 MG, BID
     Route: 048
     Dates: start: 20110616, end: 20120109

REACTIONS (4)
  - CARDIO-RESPIRATORY ARREST [None]
  - VENTRICULAR TACHYCARDIA [None]
  - ARRHYTHMIA [None]
  - CENTRAL VENOUS CATHETERISATION [None]
